FAERS Safety Report 15578279 (Version 2)
Quarter: 2018Q4

REPORT INFORMATION
  Report Type: Spontaneous
  Country: BR (occurrence: BR)
  Receive Date: 20181102
  Receipt Date: 20181107
  Transmission Date: 20190205
  Serious: Yes (Other)
  Sender: FDA-Public Use
  Company Number: BR-BIOGEN-2018BI00653899

PATIENT
  Age: 60 Year
  Sex: Female

DRUGS (1)
  1. AVONEX [Suspect]
     Active Substance: INTERFERON BETA-1A
     Indication: TROPICAL SPASTIC PARESIS
     Route: 030

REACTIONS (5)
  - Overdose [Unknown]
  - Arrhythmia [Unknown]
  - Off label use [Unknown]
  - Paraparesis [Unknown]
  - Thrombosis [Not Recovered/Not Resolved]
